FAERS Safety Report 8951423 (Version 1)
Quarter: 2012Q4

REPORT INFORMATION
  Report Type: 
  Country: GB (occurrence: GB)
  Receive Date: 20121207
  Receipt Date: 20121207
  Transmission Date: 20130627
  Serious: Yes (Hospitalization)
  Sender: FDA-Public Use
  Company Number: PHHY2012GB110582

PATIENT
  Age: 78 Year
  Sex: Male
  Weight: 72 kg

DRUGS (20)
  1. PREDNISONE [Suspect]
     Indication: B-CELL LYMPHOMA
     Dosage: 100 mg, QW3
     Route: 048
     Dates: start: 20111130
  2. DOXORUBICIN HYDROCHLORIDE [Suspect]
     Indication: B-CELL LYMPHOMA
     Route: 042
  3. VINCRISTINE [Suspect]
     Indication: B-CELL LYMPHOMA
     Dosage: 2 mg, QW3
     Route: 040
     Dates: start: 20111130
  4. RITUXIMAB [Suspect]
     Indication: B-CELL LYMPHOMA
     Dosage: 500 ml, QW3
     Route: 042
     Dates: start: 20111130
  5. CYCLOPHOSPHAMIDE [Suspect]
     Indication: B-CELL LYMPHOMA
     Dosage: 1300 mg, QW3
     Route: 042
     Dates: start: 20111130
  6. ASPIRIN [Concomitant]
     Indication: BLOOD PRESSURE
  7. CARMELLOSE [Concomitant]
     Indication: DRY EYE
  8. CO-CODAMOL [Concomitant]
     Indication: ABDOMINAL PAIN UPPER
  9. RAMIPRIL [Concomitant]
     Indication: BLOOD PRESSURE
  10. SIMVASTATIN [Concomitant]
     Indication: BLOOD PRESSURE
  11. ALLOPURINOL [Concomitant]
     Indication: PROPHYLAXIS
     Dates: start: 20111130, end: 20111221
  12. ACICLOVIR [Concomitant]
     Dates: start: 20111130
  13. OMEPRAZOLE [Concomitant]
     Dates: start: 20111130
  14. ONDANSETRON [Concomitant]
     Route: 042
     Dates: start: 20111130
  15. METOCLOPRAMIDE [Concomitant]
     Dates: start: 20111130
  16. TAZOCIN [Concomitant]
     Indication: ANTIBIOTIC THERAPY
     Dates: start: 20111211, end: 20111215
  17. GENTAMICIN [Concomitant]
     Indication: ANTIBIOTIC THERAPY
     Dates: start: 20111211, end: 20111215
  18. CHLORPHENIRAMINE MALEATE [Concomitant]
     Route: 042
     Dates: start: 20111130
  19. PARACETAMOL [Concomitant]
     Dates: start: 20111130
  20. BENDROFLUAZIDE [Concomitant]
     Indication: BLOOD PRESSURE

REACTIONS (1)
  - Febrile neutropenia [Recovered/Resolved]
